FAERS Safety Report 12518850 (Version 1)
Quarter: 2016Q2

REPORT INFORMATION
  Report Type: Spontaneous
  Country: US (occurrence: US)
  Receive Date: 20160630
  Receipt Date: 20160630
  Transmission Date: 20160815
  Serious: No
  Sender: FDA-Public Use
  Company Number: US-GLAXOSMITHKLINE-US2016093342

PATIENT
  Age: 85 Year
  Sex: Female

DRUGS (1)
  1. VOLTAREN [Suspect]
     Active Substance: DICLOFENAC SODIUM
     Indication: ARTHRITIS
     Dosage: UNK
     Dates: start: 20160617

REACTIONS (5)
  - Bone pain [Unknown]
  - Emotional distress [Unknown]
  - Condition aggravated [Unknown]
  - Pain in extremity [Unknown]
  - Confusional state [Unknown]

NARRATIVE: CASE EVENT DATE: 201606
